FAERS Safety Report 5154455-8 (Version None)
Quarter: 2006Q4

REPORT INFORMATION
  Report Type: 
  Country: None (occurrence: None)
  Receive Date: 20061114
  Receipt Date: 20061102
  Transmission Date: 20070319
  Serious: Yes (Other)
  Sender: FDA-Public Use
  Company Number: 2006133622

PATIENT
  Sex: Female

DRUGS (1)
  1. FLUCONAZOLE [Suspect]
     Dosage: (1 IN 1 D)

REACTIONS (7)
  - ACNE [None]
  - BLOOD GLUCOSE INCREASED [None]
  - FOLLICULITIS [None]
  - FURUNCLE [None]
  - GAMMA-GLUTAMYLTRANSFERASE INCREASED [None]
  - PARONYCHIA [None]
  - THIRST [None]
